FAERS Safety Report 6305782-X (Version None)
Quarter: 2009Q3

REPORT INFORMATION
  Report Type: 
  Country: None (occurrence: None)
  Receive Date: 20090812
  Receipt Date: 20090805
  Transmission Date: 20100115
  Serious: Yes (Hospitalization, Other)
  Sender: FDA-Public Use
  Company Number: US-BIOGENIDEC-2009BI025035

PATIENT
  Age: 0 Day
  Sex: Male

DRUGS (2)
  1. AVONEX [Suspect]
     Indication: DRUG EXPOSURE DURING PREGNANCY
     Route: 064
     Dates: start: 19990101
  2. AVONEX [Suspect]
     Route: 064
     Dates: end: 20040101

REACTIONS (3)
  - IMMATURE RESPIRATORY SYSTEM [None]
  - JAUNDICE [None]
  - PREMATURE LABOUR [None]
